FAERS Safety Report 6726613-X (Version None)
Quarter: 2010Q2

REPORT INFORMATION
  Report Type: 
  Country: None (occurrence: None)
  Receive Date: 20100514
  Receipt Date: 20100430
  Transmission Date: 20101027
  Serious: Yes (Hospitalization)
  Sender: FDA-Public Use
  Company Number: ES-B.I. PHARMACEUTICALS,INC./RIDGEFIELD-2010-ES-00110ES

PATIENT
  Age: 80 Year
  Sex: Female

DRUGS (2)
  1. MICARDIS [Suspect]
     Indication: HYPERTENSION
     Dosage: 40 MG
     Route: 048
     Dates: start: 20080101
  2. GOJI BAYAS [Suspect]
     Route: 048
     Dates: start: 20100401, end: 20100405

REACTIONS (3)
  - DRUG INTERACTION [None]
  - HYPOTENSION [None]
  - POLYURIA [None]
